FAERS Safety Report 19291135 (Version 2)
Quarter: 2021Q2

REPORT INFORMATION
  Report Type: Spontaneous
  Country: US (occurrence: US)
  Receive Date: 20210523
  Receipt Date: 20210528
  Transmission Date: 20210717
  Serious: Yes (Other)
  Sender: FDA-Public Use
  Company Number: US-TEVA-2021-US-1913448

PATIENT
  Age: 79 Year
  Sex: Female
  Weight: 76.2 kg

DRUGS (4)
  1. ADIPEX?P [Suspect]
     Active Substance: PHENTERMINE HYDROCHLORIDE
     Dosage: 37.5 MILLIGRAM DAILY; AT 6:00AM DAILY BEFORE BREAKFAST
     Route: 065
     Dates: start: 202105
  2. LORAZEPAM. [Concomitant]
     Active Substance: LORAZEPAM
  3. ADIPEX?P [Suspect]
     Active Substance: PHENTERMINE HYDROCHLORIDE
     Indication: OBESITY
     Dosage: 37.5 MILLIGRAM DAILY; AT 6:00AM DAILY BEFORE BREAKFAST
     Route: 065
  4. SYNTHROID [Concomitant]
     Active Substance: LEVOTHYROXINE SODIUM
     Dosage: 100 MICROGRAM DAILY;

REACTIONS (7)
  - Drug ineffective [Unknown]
  - Hunger [Not Recovered/Not Resolved]
  - Starvation [Not Recovered/Not Resolved]
  - Weight increased [Not Recovered/Not Resolved]
  - Discouragement [Unknown]
  - Feeling abnormal [Unknown]
  - Product formulation issue [Unknown]

NARRATIVE: CASE EVENT DATE: 202105
